FAERS Safety Report 9636493 (Version 4)
Quarter: 2014Q1

REPORT INFORMATION
  Report Type: Spontaneous
  Country: US (occurrence: None)
  Receive Date: 20131017
  Receipt Date: 20140205
  Transmission Date: 20141002
  Serious: Yes (Hospitalization, Other)
  Sender: FDA-Public Use
  Company Number: 2012-004355

PATIENT
  Age: 48 Year
  Sex: Female
  Weight: 67.6 kg

DRUGS (15)
  1. ACTONEL [Suspect]
     Indication: OSTEOPOROSIS
     Route: 048
     Dates: start: 20070323, end: 20080424
  2. FOSAMAX [Suspect]
     Indication: OSTEOPOROSIS
     Route: 048
  3. PREMPRO (ESTROGENS CONJUGATED, MEDROXYPROGESTERONE ACETATE) [Concomitant]
  4. ESTRADIOL (ESTRADIOL) (GEL) [Concomitant]
  5. ALEVE (NAPROXEN SODIUM) [Concomitant]
  6. PHENERGAN /00033001/PROMETHAZINE) [Concomitant]
  7. GLUCOSAMINE (GLUCOSAMINE) [Concomitant]
  8. CHONDROITIN (CHONDROITIN) [Concomitant]
  9. FISH OIL (FISH OIL) [Concomitant]
  10. SALICIN (SALICIN) [Concomitant]
  11. CURCUMIN (CURCUMIN) [Concomitant]
  12. FLAXSEED OIL (LINUM USITATISIMUM SEED OIL) [Concomitant]
  13. MULTIVITAMIN /00097801/(ASCORBIC ACID, CALCIUM PANTOTHENATE, ERGOCALICIFEROL, NICOTINAMIDE, PYRIDOXINE HYDROCHLORIDE, RETINOL, RIBOFLAVIN, THIAMINE HYDROCHLORIDE) [Concomitant]
  14. CALCIUM (CALCIUM) [Concomitant]
  15. VITAMIN D /00318501/ (COLECALCIFEROL) [Concomitant]

REACTIONS (13)
  - Periprosthetic fracture [None]
  - Pain in extremity [None]
  - Rash [None]
  - Malaise [None]
  - Skeletal injury [None]
  - Low turnover osteopathy [None]
  - Femur fracture [None]
  - Fracture displacement [None]
  - Pathological fracture [None]
  - Stress fracture [None]
  - Fracture nonunion [None]
  - Bone pain [None]
  - Oedema peripheral [None]
